FAERS Safety Report 14718815 (Version 2)
Quarter: 2018Q2

REPORT INFORMATION
  Report Type: Spontaneous
  Country: CN (occurrence: CN)
  Receive Date: 20180405
  Receipt Date: 20180411
  Transmission Date: 20180711
  Serious: Yes (Life-Threatening, Other)
  Sender: FDA-Public Use
  Company Number: CN-ROCHE-2096241

PATIENT
  Age: 41 Year
  Sex: Female

DRUGS (5)
  1. GIMERACIL [Suspect]
     Active Substance: GIMERACIL
     Indication: GASTRIC CANCER
     Route: 065
     Dates: start: 20180306, end: 20180312
  2. OTERACIL POTASSIUM [Suspect]
     Active Substance: OTERACIL POTASSIUM
     Indication: GASTRIC CANCER
     Route: 065
     Dates: start: 20180306, end: 20180312
  3. XELODA [Suspect]
     Active Substance: CAPECITABINE
     Indication: GASTRIC CANCER
     Dosage: 3 TABLET IN THE MORNING AND EVENING
     Route: 048
     Dates: start: 20180313, end: 20180317
  4. TEGAFUR [Suspect]
     Active Substance: TEGAFUR
     Indication: GASTRIC CANCER
     Route: 065
     Dates: start: 20180306, end: 20180312
  5. ELOXATIN [Suspect]
     Active Substance: OXALIPLATIN
     Indication: GASTRIC CANCER
     Route: 065
     Dates: start: 20180303

REACTIONS (6)
  - Bone marrow failure [Unknown]
  - Diarrhoea [Unknown]
  - Infection [Unknown]
  - Coma [Not Recovered/Not Resolved]
  - Vomiting [Unknown]
  - Internal injury [Unknown]

NARRATIVE: CASE EVENT DATE: 20180313
